FAERS Safety Report 25958393 (Version 2)
Quarter: 2025Q4

REPORT INFORMATION
  Report Type: Report from Study
  Country: EU (occurrence: EU)
  Receive Date: 20251024
  Receipt Date: 20251106
  Transmission Date: 20260118
  Serious: Yes (Hospitalization, Other)
  Sender: ABBVIE
  Company Number: EU-ABBVIE-6484148

PATIENT
  Age: 74 Year
  Sex: Female

DRUGS (6)
  1. FOSCARBIDOPA\FOSLEVODOPA [Suspect]
     Active Substance: FOSCARBIDOPA\FOSLEVODOPA
     Indication: Parkinson^s disease
     Dosage: CRN: 0.18 ML/H, CR: 0.25 ML/H, CRH: 0.27 ML/H, ED: 0.20 ML
     Route: 058
     Dates: start: 20250811, end: 202510
  2. FOSCARBIDOPA\FOSLEVODOPA [Suspect]
     Active Substance: FOSCARBIDOPA\FOSLEVODOPA
     Dosage: DOSAGES: CRL: 0.18ML/H, CR: 0.28 ML/H, CRH: 0.30ML/H, ED: 0.20 ML.?DOSE INCREASED?FIRST ADMIN DAT...
     Route: 058
  3. QUETIAPINE [Concomitant]
     Active Substance: QUETIAPINE
     Indication: Product used for unknown indication
     Dosage: 25 MG
  4. BENSERAZIDE HYDROCHLORIDE\LEVODOPA [Concomitant]
     Active Substance: BENSERAZIDE HYDROCHLORIDE\LEVODOPA
     Indication: Parkinson^s disease
     Dosage: 100MG/25MG
  5. PANTOPRAZOLE SODIUM [Concomitant]
     Active Substance: PANTOPRAZOLE SODIUM
     Indication: Product used for unknown indication
     Dosage: 40 MG
  6. RAMIPRIL [Concomitant]
     Active Substance: RAMIPRIL
     Indication: Product used for unknown indication
     Dosage: 2.5 MG

REACTIONS (4)
  - Cardiovascular disorder [Recovered/Resolved]
  - On and off phenomenon [Not Recovered/Not Resolved]
  - Infusion site abscess [Recovering/Resolving]
  - Weight decreased [Not Recovered/Not Resolved]

NARRATIVE: CASE EVENT DATE: 20250101
